FAERS Safety Report 7128939-7 (Version None)
Quarter: 2010Q4

REPORT INFORMATION
  Report Type: 
  Country: None (occurrence: None)
  Receive Date: 20101130
  Receipt Date: 20101124
  Transmission Date: 20110411
  Serious: Yes (Hospitalization)
  Sender: FDA-Public Use
  Company Number: B0685993A

PATIENT
  Sex: Male

DRUGS (4)
  1. COMBODART [Suspect]
     Indication: BENIGN PROSTATIC HYPERPLASIA
     Dosage: 1TAB AFTER MEALS
     Route: 048
     Dates: start: 20101001, end: 20101120
  2. NAPROXEN [Concomitant]
     Indication: ARTHRITIS
  3. OMEPRAZOLE [Concomitant]
  4. GLUCOSAMINE SULPHATE [Concomitant]

REACTIONS (5)
  - LOSS OF CONSCIOUSNESS [None]
  - MYOCARDIAL INFARCTION [None]
  - PULSE ABSENT [None]
  - SYNCOPE [None]
  - URINARY TRACT INFECTION [None]
